FAERS Safety Report 4938732-9 (Version None)
Quarter: 2006Q1

REPORT INFORMATION
  Report Type: 
  Country: None (occurrence: None)
  Receive Date: 20060306
  Receipt Date: 20060225
  Transmission Date: 20060701
  Serious: Yes (Hospitalization, Other)
  Sender: FDA-Public Use
  Company Number: 2006027894

PATIENT
  Age: 84 Year
  Sex: Male

DRUGS (4)
  1. NEURONTIN [Suspect]
     Indication: NEUROPATHY PERIPHERAL
     Dosage: UNKNOWN
     Route: 065
     Dates: start: 19960101
  2. LUNESTA [Concomitant]
  3. PRILOSEC [Concomitant]
  4. METOCLOPRAMIDE [Concomitant]

REACTIONS (8)
  - BODY HEIGHT DECREASED [None]
  - CARDIAC PACEMAKER INSERTION [None]
  - DEPRESSION [None]
  - DIZZINESS [None]
  - HYPERTONIC BLADDER [None]
  - PROSTATIC DISORDER [None]
  - THYROID DISORDER [None]
  - WEIGHT DECREASED [None]
